FAERS Safety Report 4534165-8 (Version None)
Quarter: 2004Q4

REPORT INFORMATION
  Report Type: 
  Country: None (occurrence: None)
  Receive Date: 20041214
  Receipt Date: 20040714
  Transmission Date: 20050328
  Serious: No
  Sender: FDA-Public Use
  Company Number: USA040772353

PATIENT
  Age: 79 Year
  Sex: Male
  Weight: 75 kg

DRUGS (17)
  1. CIALIS [Suspect]
     Dosage: 20 MG
     Dates: start: 20040614
  2. COUMADIN [Concomitant]
  3. ZESTRIL [Concomitant]
  4. LANOXIN [Concomitant]
  5. METOPROLOL [Concomitant]
  6. PREVACID [Concomitant]
  7. FOLIC ACID [Concomitant]
  8. TRICOR [Concomitant]
  9. ALPHAGAN [Concomitant]
  10. TRAVATAN (TRAVOPROST) [Concomitant]
  11. CALCIUM [Concomitant]
  12. VITAMIN E (HERBAL OIL NOS) [Concomitant]
  13. FIBERCON (POLYCARBOPHIL CALCIUM) [Concomitant]
  14. VITAMIN C [Concomitant]
  15. OCUVITE [Concomitant]
  16. ASPERCREME (TROLAMINE SALICYLATE) [Concomitant]
  17. FUROSEMIDE [Concomitant]

REACTIONS (3)
  - BLOOD PRESSURE DECREASED [None]
  - INCREASED TENDENCY TO BRUISE [None]
  - INTERNATIONAL NORMALISED RATIO INCREASED [None]
